FAERS Safety Report 10230434 (Version 2)
Quarter: 2014Q2

REPORT INFORMATION
  Report Type: Report from Study
  Country: US (occurrence: US)
  Receive Date: 20140611
  Receipt Date: 20140611
  Transmission Date: 20141212
  Serious: Yes (Hospitalization)
  Sender: FDA-Public Use
  Company Number: US-BAYER-201029802NA

PATIENT
  Age: 40 Year
  Sex: Female
  Weight: 80 kg

DRUGS (7)
  1. SORAFENIB (RAF KINASE INHIBITOR) [Suspect]
     Indication: BREAST CANCER METASTATIC
     Route: 048
     Dates: start: 20091028, end: 20100706
  2. TAMOXIFEN [Concomitant]
  3. ZOLADEX [Concomitant]
  4. ZOMETA [Concomitant]
  5. LISINOPRIL/HCTZ [Concomitant]
  6. OXYCONTIN [Concomitant]
  7. DILAUDID [Concomitant]

REACTIONS (2)
  - Colitis [Recovering/Resolving]
  - Hypophosphataemia [None]
